FAERS Safety Report 4907310-X (Version None)
Quarter: 2006Q1

REPORT INFORMATION
  Report Type: 
  Country: None (occurrence: None)
  Receive Date: 20060208
  Receipt Date: 20060208
  Transmission Date: 20060701
  Serious: Yes (Life-Threatening, Hospitalization)
  Sender: FDA-Public Use
  Company Number: None

PATIENT
  Age: 65 Year
  Sex: Male
  Weight: 135 kg

DRUGS (14)
  1. SPIRONOLACTONE [Suspect]
     Indication: CARDIAC FAILURE CONGESTIVE
     Dosage: 25 MG 4TABS/DAY ORAL
     Route: 048
     Dates: start: 20051109, end: 20051122
  2. POTASSIUM CHLORIDE [Suspect]
     Indication: BLOOD POTASSIUM DECREASED
     Dosage: 60 MEQ 4X/DAY ORAL
     Route: 048
  3. LISINOPRIL [Concomitant]
  4. LOSARTAN POTASSIUM [Concomitant]
  5. DILTIAZEM HCL [Concomitant]
  6. X [Concomitant]
  7. X [Concomitant]
  8. X [Concomitant]
  9. X [Concomitant]
  10. X [Concomitant]
  11. X [Concomitant]
  12. VITAMIN E [Concomitant]
  13. LORAZEPAM [Concomitant]
  14. XX [Concomitant]

REACTIONS (4)
  - ASTHENIA [None]
  - CARDIAC FAILURE CONGESTIVE [None]
  - DIZZINESS [None]
  - HYPERKALAEMIA [None]
